FAERS Safety Report 7014051-4 (Version None)
Quarter: 2010Q3

REPORT INFORMATION
  Report Type: 
  Country: None (occurrence: None)
  Receive Date: 20100927
  Receipt Date: 20100915
  Transmission Date: 20110219
  Serious: Yes (Hospitalization)
  Sender: FDA-Public Use
  Company Number: US-BIOGENIDEC-2010BI026793

PATIENT
  Age: 53 Year
  Sex: Female

DRUGS (6)
  1. AVONEX [Suspect]
     Indication: MULTIPLE SCLEROSIS
     Route: 030
     Dates: start: 20001117
  2. AVONEX [Suspect]
     Route: 030
     Dates: end: 20060605
  3. AVONEX [Suspect]
     Route: 030
     Dates: start: 20070727, end: 20100801
  4. AVONEX [Suspect]
     Route: 030
     Dates: start: 20100829, end: 20100905
  5. AVONEX [Suspect]
     Route: 030
     Dates: start: 20100901
  6. COPAXONE [Concomitant]

REACTIONS (5)
  - BACK PAIN [None]
  - DRUG INEFFECTIVE [None]
  - FALL [None]
  - MUSCULOSKELETAL STIFFNESS [None]
  - URINARY TRACT INFECTION [None]
